FAERS Safety Report 20702421 (Version 1)
Quarter: 2022Q2

REPORT INFORMATION
  Report Type: Spontaneous
  Country: US (occurrence: US)
  Receive Date: 20220412
  Receipt Date: 20220412
  Transmission Date: 20220720
  Serious: Yes (Death, Other)
  Sender: FDA-Public Use
  Company Number: US-ABBVIE-22K-163-4355932-00

PATIENT
  Age: 80 Year
  Sex: Male

DRUGS (5)
  1. VENETOCLAX [Suspect]
     Active Substance: VENETOCLAX
     Indication: Acute myeloid leukaemia
     Route: 048
  2. VENETOCLAX [Suspect]
     Active Substance: VENETOCLAX
     Route: 048
  3. DECITABINE [Suspect]
     Active Substance: DECITABINE
     Indication: Acute myeloid leukaemia
     Route: 065
  4. DECITABINE [Suspect]
     Active Substance: DECITABINE
     Dosage: REDUCED TO 25%
     Route: 065
  5. FLUCONAZOLE [Concomitant]
     Active Substance: FLUCONAZOLE
     Indication: Acute myeloid leukaemia

REACTIONS (2)
  - Cardio-respiratory arrest [Fatal]
  - Atrial fibrillation [Unknown]
